FAERS Safety Report 9726402 (Version 2)
Quarter: 2013Q4

REPORT INFORMATION
  Report Type: Spontaneous
  Country: US (occurrence: US)
  Receive Date: 20131203
  Receipt Date: 20131203
  Transmission Date: 20140711
  Serious: Yes (Hospitalization)
  Sender: FDA-Public Use
  Company Number: US-ACTELION-A-US2013-90812

PATIENT
  Age: 39 Year
  Sex: Female

DRUGS (11)
  1. VELETRI [Suspect]
     Indication: PULMONARY ARTERIAL HYPERTENSION
     Dosage: 35 NG/KG, PER MIN
     Route: 042
     Dates: start: 20121128
  2. TRACLEER [Concomitant]
     Indication: PULMONARY ARTERIAL HYPERTENSION
     Route: 048
  3. ADCIRCA [Concomitant]
  4. COUMADIN [Concomitant]
  5. NEXIUM [Concomitant]
  6. REVATIO [Concomitant]
  7. LASIX [Concomitant]
  8. KCL [Concomitant]
  9. SYNTHROID [Concomitant]
  10. GABAPENTIN [Concomitant]
  11. FLONASE [Concomitant]

REACTIONS (10)
  - Device related infection [Not Recovered/Not Resolved]
  - Staphylococcal infection [Not Recovered/Not Resolved]
  - Pyrexia [Not Recovered/Not Resolved]
  - Tachycardia [Not Recovered/Not Resolved]
  - Central venous catheterisation [Not Recovered/Not Resolved]
  - Anxiety [Unknown]
  - Device alarm issue [Unknown]
  - Urinary tract infection [Not Recovered/Not Resolved]
  - Inadequate aseptic technique in use of product [Not Recovered/Not Resolved]
  - Blood culture positive [Not Recovered/Not Resolved]
